FAERS Safety Report 21895552 (Version 1)
Quarter: 2023Q1

REPORT INFORMATION
  Report Type: Spontaneous
  Country: US (occurrence: US)
  Receive Date: 20230123
  Receipt Date: 20230123
  Transmission Date: 20230417
  Serious: No
  Sender: FDA-Public Use
  Company Number: US-BRISTOL-MYERS SQUIBB COMPANY-2023-009657

PATIENT
  Age: 75 Year
  Sex: Female

DRUGS (1)
  1. ELIQUIS [Suspect]
     Active Substance: APIXABAN
     Indication: Thrombosis prophylaxis
     Dosage: REFER TO NARRATIVEINCLUDECLINICAL
     Route: 048
     Dates: start: 2018

REACTIONS (5)
  - Palpitations [Unknown]
  - Trigeminal neuralgia [Unknown]
  - Dental caries [Unknown]
  - Product dose omission issue [Unknown]
  - Off label use [Unknown]
